FAERS Safety Report 9404752 (Version 2)
Quarter: 2013Q3

REPORT INFORMATION
  Report Type: Spontaneous
  Country: CA (occurrence: CA)
  Receive Date: 20130717
  Receipt Date: 20130726
  Transmission Date: 20140515
  Serious: No
  Sender: FDA-Public Use
  Company Number: CA-AMGEN-CANSP2013049291

PATIENT
  Age: 82 Year
  Sex: Male

DRUGS (6)
  1. NEUPOGEN [Suspect]
     Indication: PROPHYLAXIS
     Dosage: UNK
     Route: 065
     Dates: start: 20130527
  2. RITUXIMAB [Concomitant]
     Indication: NON-HODGKIN^S LYMPHOMA
     Dosage: UNK UNK, 21 DAY CYCLE
     Dates: start: 20130526
  3. CYCLOPHOSPHAMIDE [Concomitant]
     Indication: NON-HODGKIN^S LYMPHOMA
     Dosage: UNK UNK, 21 DAY CYCLE
     Dates: start: 20130526
  4. DOXORUBICIN [Concomitant]
     Indication: NON-HODGKIN^S LYMPHOMA
     Dosage: UNK UNK, 21 DAY CYCLE
     Dates: start: 20130526
  5. ONCOVIN [Concomitant]
     Indication: NON-HODGKIN^S LYMPHOMA
     Dosage: UNK UNK, 21 DAY CYCLE
     Dates: start: 20130526
  6. PREDNISOLONE [Concomitant]
     Indication: NON-HODGKIN^S LYMPHOMA
     Dosage: UNK UNK, 21 DAY CYCLE
     Dates: start: 20130526

REACTIONS (2)
  - Injection site pain [Unknown]
  - Injection site discomfort [Unknown]
